FAERS Safety Report 6945575-3 (Version None)
Quarter: 2010Q3

REPORT INFORMATION
  Report Type: 
  Country: None (occurrence: None)
  Receive Date: 20100827
  Receipt Date: 20100819
  Transmission Date: 20110219
  Serious: Yes (Hospitalization)
  Sender: FDA-Public Use
  Company Number: DE-ROCHE-722674

PATIENT
  Sex: Female
  Weight: 68 kg

DRUGS (2)
  1. BEVACIZUMAB [Suspect]
     Indication: BREAST CANCER
     Dosage: DOSE AS PER PROTOCOL, DAY 1
     Route: 042
     Dates: start: 20100722
  2. CAPECITABINE [Suspect]
     Indication: BREAST CANCER
     Dosage: DOSE AS PER PROTOCOL. DAYS 1 - 14
     Route: 048
     Dates: start: 20100722

REACTIONS (1)
  - PALMAR-PLANTAR ERYTHRODYSAESTHESIA SYNDROME [None]
